FAERS Safety Report 5512604-3 (Version None)
Quarter: 2007Q4

REPORT INFORMATION
  Report Type: 
  Country: None (occurrence: None)
  Receive Date: 20071107
  Receipt Date: 20071024
  Transmission Date: 20080405
  Serious: Yes (Death, Life-Threatening)
  Sender: FDA-Public Use
  Company Number: CLOF-10728

PATIENT
  Age: 69 Year
  Sex: 0

DRUGS (3)
  1. CLOFARABINE. MFR: GENZYME [Suspect]
     Indication: MYELOID LEUKAEMIA
     Dates: start: 20070928, end: 20071002
  2. DAUNORUBICIN HCL [Suspect]
     Indication: MYELOID LEUKAEMIA
     Dates: start: 20070928, end: 20071002
  3. GETUZUMAB OZOGAMICIN [Suspect]
     Indication: MYELOID LEUKAEMIA
     Dates: start: 20070928, end: 20071002

REACTIONS (5)
  - COMA [None]
  - ELECTROLYTE IMBALANCE [None]
  - HEPATORENAL FAILURE [None]
  - HYPOKALAEMIA [None]
  - SEPSIS [None]
